FAERS Safety Report 6093780-3 (Version None)
Quarter: 2009Q1

REPORT INFORMATION
  Report Type: 
  Country: None (occurrence: None)
  Receive Date: 20090226
  Receipt Date: 20090223
  Transmission Date: 20090719
  Serious: Yes (Hospitalization)
  Sender: FDA-Public Use
  Company Number: US-KINGPHARMUSA00001-K200900181

PATIENT
  Age: 64 Year
  Sex: Male

DRUGS (6)
  1. ALTACE [Suspect]
     Indication: HYPERTENSION
     Dosage: 5 MG, QD
     Route: 048
     Dates: start: 20090130, end: 20090201
  2. ALTACE [Suspect]
     Dosage: 2.5 MG, QD
     Route: 048
     Dates: start: 20090117, end: 20090129
  3. SODIUM BICARBONATE [Concomitant]
     Dosage: UNK
     Dates: start: 20090117
  4. TARDYFERON                         /00023503/ [Concomitant]
     Dosage: UNK
     Dates: start: 20090129
  5. LASIX [Concomitant]
     Dosage: UNK
     Dates: start: 20090129
  6. EZETROL [Concomitant]
     Dosage: UNK
     Dates: start: 20090129

REACTIONS (3)
  - APHASIA [None]
  - TONGUE OEDEMA [None]
  - TONGUE ULCERATION [None]
